FAERS Safety Report 9354026 (Version 2)
Quarter: 2014Q2

REPORT INFORMATION
  Report Type: Spontaneous
  Country: IT (occurrence: IT)
  Receive Date: 20130618
  Receipt Date: 20140516
  Transmission Date: 20141212
  Serious: Yes (Hospitalization)
  Sender: FDA-Public Use
  Company Number: IT-WATSON-2013-11167

PATIENT
  Age: 70 Year
  Sex: Male

DRUGS (2)
  1. GEMCITABINE (UNKNOWN) [Suspect]
     Indication: PANCREATIC CARCINOMA
     Dosage: 1900 MG, EVERY TRIMESTER
     Route: 042
     Dates: start: 20130101, end: 20130429
  2. LEVOFLOXACIN (UNKNOWN) [Suspect]
     Indication: INFECTION
     Dosage: 500 MG, DAILY
     Route: 048
     Dates: start: 20130501, end: 20130507

REACTIONS (4)
  - Pleural effusion [Recovering/Resolving]
  - Renal failure [Recovering/Resolving]
  - Oedema [Recovering/Resolving]
  - Thrombotic microangiopathy [Recovering/Resolving]
